FAERS Safety Report 8890610 (Version 1)
Quarter: 2012Q4

REPORT INFORMATION
  Report Type: 
  Country: US (occurrence: US)
  Receive Date: 20121107
  Receipt Date: 20121107
  Transmission Date: 20130627
  Serious: Yes (Other)
  Sender: FDA-Public Use
  Company Number: US-JNJFOC-20121017149

PATIENT
  Sex: Female
  Weight: 61.69 kg

DRUGS (4)
  1. REMICADE [Suspect]
     Indication: RHEUMATOID ARTHRITIS
     Route: 042
     Dates: start: 201210
  2. REMICADE [Suspect]
     Indication: RHEUMATOID ARTHRITIS
     Route: 042
     Dates: start: 2006
  3. ANTIARRHYTHMICS, CLASS I AND III [Suspect]
     Indication: ATRIAL FIBRILLATION
     Route: 065
     Dates: end: 2008
  4. METHOTREXATE [Concomitant]
     Indication: RHEUMATOID ARTHRITIS
     Route: 048

REACTIONS (8)
  - Blood pressure increased [Not Recovered/Not Resolved]
  - Infusion related reaction [Recovered/Resolved]
  - Atrial fibrillation [Recovered/Resolved]
  - Skin lesion [Recovered/Resolved]
  - Basosquamous carcinoma [None]
  - Blood pressure fluctuation [None]
  - Drug ineffective [None]
  - Scar [None]
